FAERS Safety Report 10765701 (Version 2)
Quarter: 2015Q1

REPORT INFORMATION
  Report Type: Spontaneous
  Country: SE (occurrence: None)
  Receive Date: 20150203
  Receipt Date: 20150203
  Transmission Date: 20150721
  Serious: Yes (Other)
  Sender: FDA-Public Use
  Company Number: SE-20150002

PATIENT
  Age: 42 Year
  Sex: Female

DRUGS (1)
  1. DOTAREM [Suspect]
     Active Substance: GADOTERATE MEGLUMINE
     Indication: NUCLEAR MAGNETIC RESONANCE IMAGING
     Dosage: (NOT OTHERWISE SPECIFIED)
     Route: 042

REACTIONS (19)
  - Pain of skin [None]
  - Chest discomfort [None]
  - Contusion [None]
  - Dyspnoea [None]
  - Visual field defect [None]
  - Bone pain [None]
  - Asthma [None]
  - Pyrexia [None]
  - Myalgia [None]
  - Abdominal pain [None]
  - Breath sounds abnormal [None]
  - Vomiting [None]
  - Dizziness [None]
  - Anxiety [None]
  - Hyperhidrosis [None]
  - Pharyngeal oedema [None]
  - Visual acuity reduced [None]
  - Arthralgia [None]
  - No therapeutic response [None]

NARRATIVE: CASE EVENT DATE: 20141007
